FAERS Safety Report 8316811-6 (Version None)
Quarter: 2012Q2

REPORT INFORMATION
  Report Type: 
  Country: None (occurrence: None)
  Receive Date: 20120425
  Receipt Date: 20120417
  Transmission Date: 20120825
  Serious: No
  Sender: FDA-Public Use
  Company Number: 2012SP011690

PATIENT
  Sex: Female

DRUGS (3)
  1. PEG-INTRON [Suspect]
     Indication: HEPATITIS C
     Dates: start: 20111229, end: 20120222
  2. RIBAVIRIN [Suspect]
     Indication: HEPATITIS C
     Dates: start: 20111229, end: 20120222
  3. INCIVEK [Suspect]
     Indication: HEPATITIS C
     Dates: start: 20111229, end: 20120222

REACTIONS (7)
  - HEPATITIS C [None]
  - PAIN [None]
  - NO THERAPEUTIC RESPONSE [None]
  - INSOMNIA [None]
  - DEHYDRATION [None]
  - DRY MOUTH [None]
  - DISEASE RECURRENCE [None]
